FAERS Safety Report 24961553 (Version 1)
Quarter: 2025Q1

REPORT INFORMATION
  Report Type: Spontaneous
  Country: IL (occurrence: IL)
  Receive Date: 20250212
  Receipt Date: 20250212
  Transmission Date: 20250409
  Serious: Yes (Other)
  Sender: NOVARTIS
  Company Number: IL-002147023-NVSC2025IL023779

PATIENT
  Age: 62 Year
  Sex: Female

DRUGS (2)
  1. FEMARA [Suspect]
     Active Substance: LETROZOLE
     Indication: Breast cancer
     Route: 065
     Dates: start: 2016, end: 201707
  2. FEMARA [Suspect]
     Active Substance: LETROZOLE
     Route: 065
     Dates: start: 202004

REACTIONS (5)
  - Metastases to central nervous system [Unknown]
  - Metastases to bone [Unknown]
  - Asthenia [Unknown]
  - Bone pain [Unknown]
  - Visual impairment [Unknown]

NARRATIVE: CASE EVENT DATE: 20170701
